FAERS Safety Report 17236136 (Version 1)
Quarter: 2020Q1

REPORT INFORMATION
  Report Type: Spontaneous
  Country: US (occurrence: US)
  Receive Date: 20200106
  Receipt Date: 20200106
  Transmission Date: 20200409
  Serious: No
  Sender: FDA-Public Use
  Company Number: US-SUN PHARMACEUTICAL INDUSTRIES LTD-2019R1-229467

PATIENT
  Age: 78 Year
  Sex: Female

DRUGS (1)
  1. XELPROS [Suspect]
     Active Substance: LATANOPROST
     Indication: GLAUCOMA
     Dosage: UNK (1GTTS OU QHS)
     Route: 047
     Dates: start: 20190731, end: 20191116

REACTIONS (5)
  - Eye irritation [Recovered/Resolved]
  - Dry eye [Recovered/Resolved]
  - Lacrimation increased [Recovered/Resolved]
  - Skin irritation [Recovered/Resolved]
  - Ocular hyperaemia [Recovered/Resolved]

NARRATIVE: CASE EVENT DATE: 2019
